FAERS Safety Report 15773072 (Version 1)
Quarter: 2018Q4

REPORT INFORMATION
  Report Type: Report from Study
  Country: US (occurrence: US)
  Receive Date: 20181228
  Receipt Date: 20181228
  Transmission Date: 20190205
  Serious: No
  Sender: FDA-Public Use
  Company Number: PHEH2018US054137

PATIENT
  Sex: Male

DRUGS (1)
  1. GILENYA [Suspect]
     Active Substance: FINGOLIMOD HYDROCHLORIDE
     Indication: MULTIPLE SCLEROSIS
     Dosage: 0.5 MG, QD
     Route: 048
     Dates: start: 20181211

REACTIONS (5)
  - Arthritis [Recovering/Resolving]
  - Arthralgia [Recovered/Resolved]
  - Chills [Recovered/Resolved]
  - Musculoskeletal pain [Recovering/Resolving]
  - Mobility decreased [Unknown]
